FAERS Safety Report 8782508 (Version 1)
Quarter: 2012Q4

REPORT INFORMATION
  Report Type: 
  Country: JP (occurrence: JP)
  Receive Date: 20120913
  Receipt Date: 20120913
  Transmission Date: 20130627
  Serious: Yes (Death, Other)
  Sender: FDA-Public Use
  Company Number: JP-TEVA-357297ISR

PATIENT
  Age: 48 Year
  Sex: Male

DRUGS (5)
  1. PREDNISOLONE [Suspect]
     Indication: IMMUNOSUPPRESSANT DRUG THERAPY
     Dosage: low dose
     Route: 065
  2. TACROLIMUS [Suspect]
     Indication: IMMUNOSUPPRESSANT DRUG THERAPY
     Route: 065
  3. MYCOPHENOLATE MOFETIL [Suspect]
     Indication: IMMUNOSUPPRESSANT DRUG THERAPY
     Route: 065
  4. GIMERACIL, OTERACIL, TEGAFUR [Suspect]
     Indication: PANCREATIC CARCINOMA STAGE IV
     Dosage: S-1 60 mg/body daily for 28d, then rest period 14d as one course
     Route: 048
  5. GIMERACIL, OTERACIL, TEGAFUR [Suspect]
     Dosage: reduced to 40 mg/body

REACTIONS (8)
  - Pancreatic carcinoma [Fatal]
  - Malignant ascites [Fatal]
  - Bone marrow failure [Unknown]
  - Decreased appetite [Unknown]
  - Pigmentation disorder [Unknown]
  - Rash [Unknown]
  - Pancreatic carcinoma metastatic [None]
  - Cholangitis [None]
